FAERS Safety Report 7428933-2 (Version None)
Quarter: 2011Q2

REPORT INFORMATION
  Report Type: 
  Country: None (occurrence: None)
  Receive Date: 20110415
  Receipt Date: 20110415
  Transmission Date: 20111010
  Serious: Yes (Hospitalization)
  Sender: FDA-Public Use
  Company Number: None

PATIENT
  Age: 39 Year
  Sex: Male
  Weight: 102.0593 kg

DRUGS (1)
  1. LOVASTATIN [Suspect]

REACTIONS (2)
  - DRUG DEPENDENCE [None]
  - PANCREATITIS [None]
